FAERS Safety Report 17669380 (Version 1)
Quarter: 2020Q2

REPORT INFORMATION
  Report Type: Spontaneous
  Country: US (occurrence: US)
  Receive Date: 20200415
  Receipt Date: 20200415
  Transmission Date: 20200713
  Serious: No
  Sender: FDA-Public Use
  Company Number: US-MYLANLABS-2020M1034940

PATIENT
  Sex: Female

DRUGS (1)
  1. ESTRADIOL. [Suspect]
     Active Substance: ESTRADIOL
     Indication: PRODUCT USED FOR UNKNOWN INDICATION
     Dosage: 1 GM DAILY FOR 2 WEEKS, THEN 1 GM TWICE A WEEK
     Route: 067

REACTIONS (8)
  - Unevaluable event [Not Recovered/Not Resolved]
  - Application site discharge [Not Recovered/Not Resolved]
  - Vaginal discharge [Not Recovered/Not Resolved]
  - Product communication issue [Not Recovered/Not Resolved]
  - Underdose [Not Recovered/Not Resolved]
  - Dysuria [Not Recovered/Not Resolved]
  - Verbal abuse [Unknown]
  - Vulvovaginal pain [Not Recovered/Not Resolved]
